FAERS Safety Report 17906253 (Version 1)
Quarter: 2020Q2

REPORT INFORMATION
  Report Type: Spontaneous
  Country: JP (occurrence: JP)
  Receive Date: 20200617
  Receipt Date: 20200617
  Transmission Date: 20200714
  Serious: Yes (Other)
  Sender: FDA-Public Use
  Company Number: JP-ROCHE-2624115

PATIENT
  Age: 7 Decade
  Sex: Female

DRUGS (1)
  1. KADCYLA [Suspect]
     Active Substance: ADO-TRASTUZUMAB EMTANSINE
     Indication: BREAST CANCER
     Dosage: FOUR TIMES/THREE WEEKS?RECENT DOSE ON 06/APR/2020
     Route: 041
     Dates: start: 20200131

REACTIONS (1)
  - Disease progression [Not Recovered/Not Resolved]
